FAERS Safety Report 4890772-4 (Version None)
Quarter: 2006Q1

REPORT INFORMATION
  Report Type: 
  Country: None (occurrence: None)
  Receive Date: 20060123
  Receipt Date: 20060109
  Transmission Date: 20060701
  Serious: Yes (Other)
  Sender: FDA-Public Use
  Company Number: 163-20785-05090157

PATIENT
  Age: 78 Year
  Sex: Female

DRUGS (18)
  1. THALOMID [Suspect]
     Indication: MULTIPLE MYELOMA
     Dosage: SEE IMAGE
     Route: 048
     Dates: start: 20050501, end: 20050601
  2. THALOMID [Suspect]
     Indication: MULTIPLE MYELOMA
     Dosage: SEE IMAGE
     Route: 048
     Dates: end: 20050901
  3. THALOMID [Suspect]
     Indication: MULTIPLE MYELOMA
     Dosage: SEE IMAGE
     Route: 048
     Dates: start: 20050905, end: 20050911
  4. THALOMID [Suspect]
     Indication: MULTIPLE MYELOMA
     Dosage: SEE IMAGE
     Route: 048
     Dates: start: 20050913, end: 20051101
  5. THALOMID [Suspect]
     Indication: MULTIPLE MYELOMA
     Dosage: SEE IMAGE
     Route: 048
     Dates: start: 20051101, end: 20060108
  6. THALOMID [Suspect]
     Indication: MULTIPLE MYELOMA
     Dosage: SEE IMAGE
     Route: 048
     Dates: start: 20060109
  7. DEXAMETHASONE [Suspect]
     Indication: MULTIPLE MYELOMA
     Dosage: SEE IMAGE
     Route: 048
     Dates: end: 20050801
  8. DEXAMETHASONE [Suspect]
     Indication: MULTIPLE MYELOMA
     Dosage: SEE IMAGE
     Route: 048
     Dates: start: 20050501
  9. RADIATION THERAPY [Suspect]
     Indication: BACK PAIN
     Dates: start: 20050601
  10. HYDROMORPHONE HCL [Concomitant]
  11. WARFARIN SODIUM [Concomitant]
  12. ZESTORETIC [Concomitant]
  13. AMBIEN [Concomitant]
  14. FLURAZEPAM [Concomitant]
  15. PROTONIX [Concomitant]
  16. ZOMETA [Concomitant]
  17. SMZ/TMP/DS (BACTRIM) [Concomitant]
  18. XALATAN [Concomitant]

REACTIONS (6)
  - BACK PAIN [None]
  - CATARACT [None]
  - CONSTIPATION [None]
  - HYPOAESTHESIA ORAL [None]
  - NEUROPATHY PERIPHERAL [None]
  - WHITE BLOOD CELL DISORDER [None]
